FAERS Safety Report 7820038-1 (Version None)
Quarter: 2011Q4

REPORT INFORMATION
  Report Type: 
  Country: None (occurrence: None)
  Receive Date: 20111018
  Receipt Date: 20111005
  Transmission Date: 20120403
  Serious: Yes (Hospitalization)
  Sender: FDA-Public Use
  Company Number: PHHY2011JP06758

PATIENT
  Age: 61 Year
  Sex: Female

DRUGS (3)
  1. ZOMETA [Suspect]
     Indication: METASTASES TO BONE
     Dosage: 4 MG, EVERY MONTH
     Route: 041
     Dates: start: 20060801, end: 20100301
  2. INCADRONIC ACID [Concomitant]
     Dosage: 250 MG, UNK
     Dates: start: 20050401, end: 20050701
  3. PAMIDRONATE DISODIUM [Concomitant]
     Dosage: 90 MG, UNK
     Dates: start: 20050701, end: 20060801

REACTIONS (6)
  - PAIN [None]
  - EXOSTOSIS [None]
  - HYPERTROPHY [None]
  - FALL [None]
  - FEMUR FRACTURE [None]
  - OSTEOSCLEROSIS [None]
